FAERS Safety Report 12366501 (Version 1)
Quarter: 2016Q2

REPORT INFORMATION
  Report Type: Report from Study
  Country: US (occurrence: US)
  Receive Date: 20160513
  Receipt Date: 20160513
  Transmission Date: 20160815
  Serious: Yes (Hospitalization, Other)
  Sender: FDA-Public Use
  Company Number: US-AMGEN-USASL2016057599

PATIENT
  Age: 37 Year
  Sex: Female

DRUGS (1)
  1. ENBREL [Suspect]
     Active Substance: ETANERCEPT
     Indication: RHEUMATOID ARTHRITIS
     Dosage: UNK UNK, QWK
     Route: 065
     Dates: start: 20110303

REACTIONS (8)
  - Abdominal cavity drainage [Unknown]
  - Hospitalisation [Unknown]
  - Polyneuropathy [Unknown]
  - Haemoglobin abnormal [Recovering/Resolving]
  - Autoimmune hepatitis [Unknown]
  - Gastric dilatation [Unknown]
  - Wheelchair user [Unknown]
  - Hand deformity [Unknown]
